FAERS Safety Report 13988866 (Version 1)
Quarter: 2017Q3

REPORT INFORMATION
  Report Type: Spontaneous
  Country: CA (occurrence: CA)
  Receive Date: 20170919
  Receipt Date: 20170919
  Transmission Date: 20171128
  Serious: Yes (Other)
  Sender: FDA-Public Use
  Company Number: CA-TEVA-807432ACC

PATIENT
  Age: 17 Year
  Sex: Female
  Weight: 74 kg

DRUGS (6)
  1. VINCRISTINE [Suspect]
     Active Substance: VINCRISTINE
     Indication: HODGKIN^S DISEASE STAGE III
     Route: 042
  2. DOXORUBICINE [Concomitant]
     Active Substance: DOXORUBICIN
  3. CYCLOPHOSPHAMIDE. [Concomitant]
     Active Substance: CYCLOPHOSPHAMIDE
  4. BLEOMYCIN [Concomitant]
     Active Substance: BLEOMYCIN SULFATE
  5. VINCRISTINE [Suspect]
     Active Substance: VINCRISTINE
     Route: 042
  6. ETOPOSIDE. [Concomitant]
     Active Substance: ETOPOSIDE

REACTIONS (6)
  - Chest pain [Unknown]
  - Paraesthesia [Unknown]
  - Sensory loss [Unknown]
  - Constipation [Unknown]
  - Pain in jaw [Unknown]
  - Neurotoxicity [Unknown]
